FAERS Safety Report 18557020 (Version 1)
Quarter: 2020Q4

REPORT INFORMATION
  Report Type: Spontaneous
  Country: US (occurrence: US)
  Receive Date: 20201129
  Receipt Date: 20201129
  Transmission Date: 20210114
  Serious: Yes (Life-Threatening, Other)
  Sender: FDA-Public Use
  Company Number: US-NORTHSTAR HEALTHCARE HOLDINGS-US-2020NSR000099

PATIENT
  Age: 64 Year
  Sex: Male

DRUGS (1)
  1. PROPRANOLOL HYDROCHLORIDE. [Suspect]
     Active Substance: PROPRANOLOL HYDROCHLORIDE
     Indication: HYPERTENSION
     Dosage: UNK
     Route: 065

REACTIONS (6)
  - Syncope [Unknown]
  - Overdose [Unknown]
  - Toxicity to various agents [Unknown]
  - Encephalopathy [Unknown]
  - Hyperglycaemia [Unknown]
  - Cardiac arrest [Recovering/Resolving]
